FAERS Safety Report 9673247 (Version 1)
Quarter: 2013Q4

REPORT INFORMATION
  Report Type: Spontaneous
  Country: US (occurrence: US)
  Receive Date: 20131106
  Receipt Date: 20131106
  Transmission Date: 20140711
  Serious: No
  Sender: FDA-Public Use
  Company Number: US-AMGEN-USASP2013071580

PATIENT
  Age: 41 Year
  Sex: Female

DRUGS (7)
  1. ENBREL [Suspect]
     Indication: PRODUCT USED FOR UNKNOWN INDICATION
     Dosage: 50 MG, QWK
     Route: 065
  2. VITAMINS /90003601/ [Concomitant]
     Dosage: UNK
  3. LISINOPRIL HCTZ [Concomitant]
     Dosage: 10-12.5
  4. LEVOTHYROXIN [Concomitant]
     Dosage: 25 MUG, UNK
  5. NAPROXEN SOD [Concomitant]
     Dosage: 220 MG, UNK
  6. METFORMIN [Concomitant]
     Dosage: 500 MG, UNK
  7. VICODIN [Concomitant]
     Dosage: UNK MG, UNK

REACTIONS (1)
  - Injection site pain [Unknown]
